FAERS Safety Report 21615607 (Version 1)
Quarter: 2022Q4

REPORT INFORMATION
  Report Type: Report from Study
  Country: CA (occurrence: CA)
  Receive Date: 20221118
  Receipt Date: 20221118
  Transmission Date: 20230113
  Serious: Yes (Hospitalization)
  Sender: FDA-Public Use
  Company Number: CA-TAIHO-2022-002059

PATIENT
  Age: 83 Year
  Sex: Male

DRUGS (1)
  1. LONSURF [Suspect]
     Active Substance: TIPIRACIL HYDROCHLORIDE\TRIFLURIDINE
     Indication: Metastatic gastric cancer
     Dosage: CURRENT CYCLE, DOSAGE AND FREQUENCY UNKNOWN.
     Route: 048
     Dates: start: 20221010, end: 20221101

REACTIONS (2)
  - General physical health deterioration [Unknown]
  - Nausea [Unknown]
